FAERS Safety Report 18166182 (Version 8)
Quarter: 2021Q3

REPORT INFORMATION
  Report Type: Report from Study
  Country: US (occurrence: US)
  Receive Date: 20200818
  Receipt Date: 20210903
  Transmission Date: 20211014
  Serious: No
  Sender: FDA-Public Use
  Company Number: NVSC2020US227849

PATIENT
  Sex: Male

DRUGS (1)
  1. ENTRESTO [Suspect]
     Active Substance: SACUBITRIL\VALSARTAN
     Indication: CARDIAC FAILURE
     Dosage: 50 MG, BID (24/26 MG)
     Route: 065
     Dates: start: 202008

REACTIONS (13)
  - Weight decreased [Unknown]
  - Peripheral swelling [Recovering/Resolving]
  - Abdominal discomfort [Unknown]
  - Malaise [Unknown]
  - Illness [Unknown]
  - Feeling abnormal [Unknown]
  - Memory impairment [Unknown]
  - Fatigue [Unknown]
  - Decreased appetite [Unknown]
  - Depression [Unknown]
  - Influenza [Unknown]
  - Pustule [Recovering/Resolving]
  - Dizziness [Not Recovered/Not Resolved]
